FAERS Safety Report 19520209 (Version 5)
Quarter: 2021Q3

REPORT INFORMATION
  Report Type: Report from Study
  Country: US (occurrence: US)
  Receive Date: 20210712
  Receipt Date: 20210922
  Transmission Date: 20211014
  Serious: No
  Sender: FDA-Public Use
  Company Number: NVSC2021US147694

PATIENT
  Sex: Female

DRUGS (1)
  1. ENTRESTO [Suspect]
     Active Substance: SACUBITRIL\VALSARTAN
     Indication: MYOCARDIAL INFARCTION
     Dosage: 1 DF, BID
     Route: 048

REACTIONS (4)
  - Contusion [Unknown]
  - Insomnia [Unknown]
  - Asthenia [Unknown]
  - Cardiac disorder [Recovering/Resolving]
